FAERS Safety Report 6459388-2 (Version None)
Quarter: 2009Q4

REPORT INFORMATION
  Report Type: 
  Country: None (occurrence: None)
  Receive Date: 20091127
  Receipt Date: 20090817
  Transmission Date: 20100525
  Serious: No
  Sender: FDA-Public Use
  Company Number: US-AMGEN-KDL298867

PATIENT
  Sex: Female
  Weight: 90.3 kg

DRUGS (2)
  1. ENBREL [Suspect]
     Indication: RHEUMATOID ARTHRITIS
     Route: 058
     Dates: start: 20080612, end: 20080818
  2. METHOTREXATE [Suspect]
     Dates: start: 20080606, end: 20080818

REACTIONS (2)
  - ARTHRALGIA [None]
  - HEPATIC ENZYME INCREASED [None]
